FAERS Safety Report 12546093 (Version 1)
Quarter: 2016Q3

REPORT INFORMATION
  Report Type: Report from Study
  Country: US (occurrence: US)
  Receive Date: 20160711
  Receipt Date: 20160711
  Transmission Date: 20161109
  Serious: Yes (Other)
  Sender: FDA-Public Use
  Company Number: US-GILEAD-2016-0221613

PATIENT
  Age: 62 Year
  Sex: Male

DRUGS (1)
  1. IDELALISIB [Suspect]
     Active Substance: IDELALISIB
     Indication: LYMPHOCYTOSIS
     Dosage: 100 MG, BID
     Route: 048
     Dates: start: 20150811

REACTIONS (2)
  - Tumour excision [Unknown]
  - Off label use [Unknown]

NARRATIVE: CASE EVENT DATE: 20150811
